FAERS Safety Report 13362586 (Version 1)
Quarter: 2017Q1

REPORT INFORMATION
  Report Type: Spontaneous
  Country: US (occurrence: US)
  Receive Date: 20170322
  Receipt Date: 20170322
  Transmission Date: 20170429
  Serious: No
  Sender: FDA-Public Use
  Company Number: None

PATIENT
  Age: 53 Year
  Sex: Female

DRUGS (1)
  1. CYCLOSPORINE CAP 100MG [Suspect]
     Active Substance: CYCLOSPORINE
     Dosage: 100MG 1CBID ORAL
     Route: 048
     Dates: start: 20170217

REACTIONS (2)
  - Hypersensitivity [None]
  - Pruritus [None]

NARRATIVE: CASE EVENT DATE: 20170322
